FAERS Safety Report 6055369-1 (Version None)
Quarter: 2009Q1

REPORT INFORMATION
  Report Type: 
  Country: None (occurrence: None)
  Receive Date: 20090128
  Receipt Date: 20090122
  Transmission Date: 20090719
  Serious: Yes (Hospitalization, Other)
  Sender: FDA-Public Use
  Company Number: US-PFIZER INC-2008150789

PATIENT
  Sex: Male
  Weight: 81.646 kg

DRUGS (6)
  1. CHANTIX [Suspect]
     Indication: SMOKING CESSATION THERAPY
     Dosage: 1 MG, UNK
     Dates: start: 20080101, end: 20081127
  2. ACETYLSALICYLIC ACID [Concomitant]
  3. LAMICTAL [Concomitant]
  4. NOVOLOG [Concomitant]
  5. VESICARE [Concomitant]
  6. LANTUS [Concomitant]

REACTIONS (2)
  - CONVULSION [None]
  - GRAND MAL CONVULSION [None]
